FAERS Safety Report 15976074 (Version 1)
Quarter: 2019Q1

REPORT INFORMATION
  Report Type: Spontaneous
  Country: US (occurrence: US)
  Receive Date: 20190218
  Receipt Date: 20190218
  Transmission Date: 20190418
  Serious: No
  Sender: FDA-Public Use
  Company Number: US-PFIZER INC-2019059937

PATIENT
  Age: 70 Year
  Sex: Male
  Weight: 99.79 kg

DRUGS (1)
  1. CHANTIX [Suspect]
     Active Substance: VARENICLINE TARTRATE
     Indication: SMOKING CESSATION THERAPY
     Dosage: 1 DF, 1X/DAY
     Route: 048
     Dates: start: 20190204

REACTIONS (3)
  - Pruritus [Unknown]
  - Erythema [Unknown]
  - Ear discomfort [Unknown]

NARRATIVE: CASE EVENT DATE: 20190205
